FAERS Safety Report 4489855-2 (Version None)
Quarter: 2004Q4

REPORT INFORMATION
  Report Type: 
  Country: None (occurrence: None)
  Receive Date: 20041101
  Receipt Date: 20041026
  Transmission Date: 20050328
  Serious: Yes (Hospitalization)
  Sender: FDA-Public Use
  Company Number: US-MERCK-0410USA03984

PATIENT
  Age: 69 Year
  Sex: Female

DRUGS (1)
  1. VIOXX [Suspect]
     Indication: CARPAL TUNNEL SYNDROME
     Route: 048
     Dates: start: 20040317, end: 20040501

REACTIONS (1)
  - PALPITATIONS [None]
